FAERS Safety Report 21473065 (Version 2)
Quarter: 2022Q4

REPORT INFORMATION
  Report Type: Spontaneous
  Country: DE (occurrence: DE)
  Receive Date: 20221018
  Receipt Date: 20221025
  Transmission Date: 20230113
  Serious: Yes (Hospitalization, Other)
  Sender: FDA-Public Use
  Company Number: DE-BRISTOL-MYERS SQUIBB COMPANY-2022-108403

PATIENT
  Age: 57 Year
  Sex: Male
  Weight: 78 kg

DRUGS (6)
  1. OPDIVO [Suspect]
     Active Substance: NIVOLUMAB
     Indication: Malignant melanoma
     Route: 065
     Dates: start: 202109, end: 202111
  2. OPDIVO [Suspect]
     Active Substance: NIVOLUMAB
     Dosage: 4 CYCLES
     Route: 065
     Dates: start: 202112, end: 202202
  3. OPDIVO [Suspect]
     Active Substance: NIVOLUMAB
     Route: 065
     Dates: start: 202203, end: 202204
  4. YERVOY [Suspect]
     Active Substance: IPILIMUMAB
     Indication: Malignant melanoma
     Route: 065
     Dates: start: 202112, end: 202202
  5. INFLIXIMAB [Concomitant]
     Active Substance: INFLIXIMAB
     Indication: Autoimmune hepatitis
     Route: 042
     Dates: start: 20220501
  6. PREDNISOLONE [Concomitant]
     Active Substance: PREDNISOLONE
     Indication: Autoimmune hepatitis
     Route: 042
     Dates: start: 20220501

REACTIONS (1)
  - Hepatitis E [Recovered/Resolved]

NARRATIVE: CASE EVENT DATE: 20220420
